FAERS Safety Report 9285148 (Version 4)
Quarter: 2015Q3

REPORT INFORMATION
  Report Type: Spontaneous
  Country: US (occurrence: US)
  Receive Date: 20130513
  Receipt Date: 20150916
  Transmission Date: 20151125
  Serious: Yes (Life-Threatening, Hospitalization, Other)
  Sender: FDA-Public Use
  Company Number: US-JNJFOC-20130417607

PATIENT
  Age: 67 Year
  Sex: Male
  Weight: 72.58 kg

DRUGS (17)
  1. XARELTO [Suspect]
     Active Substance: RIVAROXABAN
     Indication: ATRIAL FIBRILLATION
     Route: 048
     Dates: start: 20121217, end: 20130106
  2. RAPAFLO [Concomitant]
     Active Substance: SILODOSIN
     Indication: PROSTATIC DISORDER
     Dosage: PM
     Route: 065
  3. IMDUR [Concomitant]
     Active Substance: ISOSORBIDE MONONITRATE
     Indication: ANGINA PECTORIS
     Dosage: AM
     Route: 048
  4. CRESTOR [Concomitant]
     Active Substance: ROSUVASTATIN CALCIUM
     Indication: BLOOD CHOLESTEROL INCREASED
     Route: 048
  5. COREG [Concomitant]
     Active Substance: CARVEDILOL
     Indication: HYPERTENSION
     Dosage: AM-PM
     Route: 048
  6. XARELTO [Suspect]
     Active Substance: RIVAROXABAN
     Indication: ANTICOAGULANT THERAPY
     Route: 048
     Dates: start: 20121217, end: 20130106
  7. FINASTERIDE. [Concomitant]
     Active Substance: FINASTERIDE
     Indication: PROSTATIC DISORDER
     Dosage: IN AM
     Route: 065
     Dates: start: 2010
  8. CRESTOR [Concomitant]
     Active Substance: ROSUVASTATIN CALCIUM
     Indication: BLOOD CHOLESTEROL INCREASED
     Dosage: AM
     Route: 048
  9. COREG [Concomitant]
     Active Substance: CARVEDILOL
     Indication: HYPERTENSION
     Route: 048
  10. XARELTO [Suspect]
     Active Substance: RIVAROXABAN
     Indication: CEREBROVASCULAR ACCIDENT PROPHYLAXIS
     Route: 048
     Dates: start: 20121217, end: 20130106
  11. TIKOSYN [Concomitant]
     Active Substance: DOFETILIDE
     Indication: ATRIAL FIBRILLATION
     Route: 048
  12. PRILOSEC [Concomitant]
     Active Substance: OMEPRAZOLE MAGNESIUM
     Indication: PRODUCT USED FOR UNKNOWN INDICATION
     Dosage: AM
     Route: 065
  13. WARFARIN [Suspect]
     Active Substance: WARFARIN
     Indication: ANTICOAGULANT THERAPY
     Route: 048
     Dates: start: 2013
  14. FISH OIL [Concomitant]
     Active Substance: FISH OIL
     Dosage: IN AM
     Route: 065
  15. RAMIPRIL. [Suspect]
     Active Substance: RAMIPRIL
     Indication: PRODUCT USED FOR UNKNOWN INDICATION
     Route: 065
  16. ASPIRIN. [Suspect]
     Active Substance: ASPIRIN
     Indication: PRODUCT USED FOR UNKNOWN INDICATION
     Route: 048
  17. IRON [Concomitant]
     Active Substance: IRON
     Indication: PRODUCT USED FOR UNKNOWN INDICATION
     Dosage: AM
     Route: 048

REACTIONS (16)
  - Bone pain [Recovered/Resolved]
  - Abnormal loss of weight [Recovered/Resolved]
  - Cardiac arrest [Not Recovered/Not Resolved]
  - Hypotonia [Not Recovered/Not Resolved]
  - Asthenia [Recovered/Resolved]
  - Eating disorder [Recovered/Resolved]
  - Atrial flutter [Unknown]
  - Hospitalisation [Unknown]
  - Pain [Recovered/Resolved]
  - Feeling abnormal [Recovered/Resolved]
  - Bone marrow disorder [Recovered/Resolved]
  - Pyrexia [Recovered/Resolved]
  - Decreased appetite [Recovered/Resolved]
  - Stress [Recovered/Resolved]
  - Haemorrhage [Unknown]
  - Headache [Recovered/Resolved]

NARRATIVE: CASE EVENT DATE: 20121217
